FAERS Safety Report 18280133 (Version 1)
Quarter: 2020Q3

REPORT INFORMATION
  Report Type: Spontaneous
  Country: US (occurrence: US)
  Receive Date: 20200917
  Receipt Date: 20200917
  Transmission Date: 20201103
  Serious: No
  Sender: FDA-Public Use
  Company Number: US-PFIZER INC-2020355199

PATIENT
  Age: 75 Year
  Sex: Female

DRUGS (3)
  1. VANTIN [CEFPODOXIME PROXETIL] [Concomitant]
     Dosage: 2 DF, DAILY
     Dates: start: 202007
  2. FLAGYL [Suspect]
     Active Substance: METRONIDAZOLE\METRONIDAZOLE HYDROCHLORIDE
     Indication: CYSTITIS
  3. FLAGYL [Suspect]
     Active Substance: METRONIDAZOLE\METRONIDAZOLE HYDROCHLORIDE
     Indication: COLITIS
     Dosage: 3 DF, DAILY
     Dates: start: 202007, end: 2020

REACTIONS (1)
  - Taste disorder [Not Recovered/Not Resolved]

NARRATIVE: CASE EVENT DATE: 202007
